FAERS Safety Report 8448844-3 (Version None)
Quarter: 2012Q2

REPORT INFORMATION
  Report Type: 
  Country: None (occurrence: None)
  Receive Date: 20120619
  Receipt Date: 20120611
  Transmission Date: 20120825
  Serious: Yes (Death)
  Sender: FDA-Public Use
  Company Number: US-BAXTER-2012BAX008629

PATIENT

DRUGS (3)
  1. RITUXAN [Suspect]
  2. CYCLOPHOSPHAMIDE [Suspect]
  3. FLUDARABINE PHOSPHATE [Suspect]

REACTIONS (1)
  - DEATH [None]
